FAERS Safety Report 23416804 (Version 1)
Quarter: 2024Q1

REPORT INFORMATION
  Report Type: Spontaneous
  Country: US (occurrence: US)
  Receive Date: 20240118
  Receipt Date: 20240118
  Transmission Date: 20240410
  Serious: No
  Sender: FDA-Public Use
  Company Number: US-PFIZER INC-202400017480

PATIENT

DRUGS (4)
  1. PAXLOVID [Suspect]
     Active Substance: NIRMATRELVIR\RITONAVIR
     Indication: COVID-19 treatment
     Dosage: [NIRMATRELVIR 300 MG]/[RITONAVIR 100 MG]; 2X/DAY
     Route: 064
     Dates: start: 20231223, end: 20231228
  2. PREDNISONE [Concomitant]
     Active Substance: PREDNISONE
  3. REMICADE [Concomitant]
     Active Substance: INFLIXIMAB
     Indication: Colitis ulcerative
     Dosage: 10 MILLIGRAMS PER KILOGRAMS
  4. LEVOTHYROXINE [Concomitant]
     Active Substance: LEVOTHYROXINE\LEVOTHYROXINE SODIUM

REACTIONS (2)
  - Exposure during pregnancy [Unknown]
  - Premature labour [Unknown]

NARRATIVE: CASE EVENT DATE: 20231223
